FAERS Safety Report 14187320 (Version 1)
Quarter: 2017Q4

REPORT INFORMATION
  Report Type: Report from Study
  Country: US (occurrence: US)
  Receive Date: 20171114
  Receipt Date: 20171114
  Transmission Date: 20180321
  Serious: Yes (Other)
  Sender: FDA-Public Use
  Company Number: PHEH2017US036268

PATIENT
  Age: 58 Year
  Sex: Female

DRUGS (4)
  1. SUTENT [Suspect]
     Active Substance: SUNITINIB MALATE
     Indication: PRODUCT USED FOR UNKNOWN INDICATION
     Dosage: UNK
     Route: 065
     Dates: start: 20171006
  2. GLEEVEC [Suspect]
     Active Substance: IMATINIB MESYLATE
     Indication: GASTROINTESTINAL STROMAL TUMOUR
     Dosage: 400 MG, UNK
     Route: 065
     Dates: start: 20110301, end: 20111116
  3. GLEEVEC [Suspect]
     Active Substance: IMATINIB MESYLATE
     Dosage: 300 MG, UNK
     Route: 065
     Dates: end: 20171006
  4. GLEEVEC [Suspect]
     Active Substance: IMATINIB MESYLATE
     Dosage: 200 MG, UNK
     Route: 065

REACTIONS (9)
  - Ulcer [Unknown]
  - Joint swelling [Unknown]
  - Vomiting [Unknown]
  - Arthralgia [Unknown]
  - Diarrhoea [Unknown]
  - Drug intolerance [Unknown]
  - Eye swelling [Unknown]
  - Diverticulitis [Unknown]
  - Rash [Unknown]
